FAERS Safety Report 5055934-4 (Version None)
Quarter: 2006Q3

REPORT INFORMATION
  Report Type: 
  Country: None (occurrence: None)
  Receive Date: 20060717
  Receipt Date: 20060629
  Transmission Date: 20061208
  Serious: Yes (Hospitalization)
  Sender: FDA-Public Use
  Company Number: 2006RR-02871

PATIENT
  Age: 53 Year
  Sex: Male
  Weight: 87 kg

DRUGS (4)
  1. FENOFIBRATE [Suspect]
     Indication: DYSLIPIDAEMIA
     Dosage: 267.5 MG
  2. GLICLAZIDE (GLICLAZIDE) 30-60MG [Suspect]
     Indication: DIABETES MELLITUS
     Dosage: 0
  3. PERINDOPRIL [Concomitant]
  4. BISOPROLOL RPG (BISOPROLOL FUMARATE) [Concomitant]

REACTIONS (4)
  - DEHYDRATION [None]
  - DIARRHOEA [None]
  - DRUG INTERACTION [None]
  - RHABDOMYOLYSIS [None]
